FAERS Safety Report 8319599-8 (Version None)
Quarter: 2012Q2

REPORT INFORMATION
  Report Type: 
  Country: None (occurrence: None)
  Receive Date: 20120427
  Receipt Date: 20120424
  Transmission Date: 20120825
  Serious: Yes (Other)
  Sender: FDA-Public Use
  Company Number: US-PFIZER INC-2012102031

PATIENT
  Sex: Female
  Weight: 109 kg

DRUGS (18)
  1. HYDROCHLOROTHIAZIDE [Suspect]
     Indication: OEDEMA PERIPHERAL
     Dosage: 25 MG, DAILY
  2. HYDROCHLOROTHIAZIDE [Suspect]
     Indication: LEFT VENTRICULAR DYSFUNCTION
  3. KLOR-CON [Suspect]
     Dosage: 20 MEQ, DAILY
  4. LYRICA [Suspect]
     Dosage: 150 MG, 2X/DAY
     Route: 048
  5. SULFASALAZINE [Suspect]
     Indication: ARTHRITIS
     Dosage: 1000 MG, 2X/DAY
  6. KLOR-CON [Suspect]
     Indication: BLOOD POTASSIUM DECREASED
     Dosage: 10 MEQ, DAILY
  7. VITAMIN C [Suspect]
     Dosage: UNK
  8. LIPITOR [Suspect]
     Indication: BLOOD CHOLESTEROL INCREASED
     Dosage: 40 MG, DAILY
     Route: 048
  9. CALCITRIOL [Suspect]
     Dosage: UNK
  10. LEVOXYL [Suspect]
     Indication: THYROIDECTOMY
     Dosage: 100 UG, DAILY
  11. LOMOTIL [Suspect]
     Indication: COLITIS
     Dosage: ^0.25^ MG, 3X/DAY
  12. SULFASALAZINE [Suspect]
     Indication: FIBROMYALGIA
  13. CYMBALTA [Suspect]
     Indication: DEPRESSION
     Dosage: UNK
  14. SALSALATE [Suspect]
     Indication: ARTHRITIS
     Dosage: 1500 MG, 2X/DAY
  15. LYRICA [Suspect]
     Indication: FIBROMYALGIA
     Dosage: 75 MG, 2X/DAY
     Route: 048
  16. CITALOPRAM [Suspect]
     Indication: DEPRESSION
     Dosage: UNK
  17. METFORMIN HYDROCHLORIDE [Suspect]
     Indication: DIABETES MELLITUS
     Dosage: 50 MG, DAILY
  18. VITAMIN D [Suspect]
     Dosage: UNK

REACTIONS (4)
  - THYROID CANCER [None]
  - DIZZINESS [None]
  - BLOOD POTASSIUM DECREASED [None]
  - DIABETES MELLITUS [None]
